FAERS Safety Report 18725197 (Version 1)
Quarter: 2021Q1

REPORT INFORMATION
  Report Type: Spontaneous
  Country: US (occurrence: US)
  Receive Date: 20210111
  Receipt Date: 20210111
  Transmission Date: 20210419
  Serious: No
  Sender: FDA-Public Use
  Company Number: US-ANIPHARMA-2020-US-013837

PATIENT
  Sex: Female

DRUGS (1)
  1. FLUVOXAMINE MALEATE 100 MG [Suspect]
     Active Substance: FLUVOXAMINE MALEATE
     Indication: PRODUCT USED FOR UNKNOWN INDICATION
     Dosage: UNK
     Route: 065
     Dates: end: 202006

REACTIONS (3)
  - Expired product administered [Unknown]
  - Disorientation [Unknown]
  - Intentional product misuse [Unknown]
